FAERS Safety Report 24981542 (Version 1)
Quarter: 2025Q1

REPORT INFORMATION
  Report Type: Spontaneous
  Country: US (occurrence: US)
  Receive Date: 20250218
  Receipt Date: 20250218
  Transmission Date: 20250409
  Serious: Yes (Other)
  Sender: ALEXION PHARMACEUTICALS
  Company Number: US-ASTRAZENECA-202502USA013151US

PATIENT
  Age: 92 Year

DRUGS (2)
  1. SEROQUEL [Suspect]
     Active Substance: QUETIAPINE FUMARATE
     Indication: Hallucination
     Route: 065
  2. PROLIA [Concomitant]
     Active Substance: DENOSUMAB
     Indication: Bone density abnormal
     Route: 065

REACTIONS (8)
  - Asthenia [Unknown]
  - Aphasia [Unknown]
  - Cognitive disorder [Unknown]
  - Communication disorder [Unknown]
  - Pain [Unknown]
  - Bradyphrenia [Unknown]
  - Osteoarthritis [Unknown]
  - Tooth loss [Unknown]
